FAERS Safety Report 16762203 (Version 3)
Quarter: 2019Q4

REPORT INFORMATION
  Report Type: Report from Study
  Country: None (occurrence: US)
  Receive Date: 20190831
  Receipt Date: 20191127
  Transmission Date: 20200122
  Serious: Yes (Other)
  Sender: FDA-Public Use
  Company Number: US-ABBVIE-19K-163-2905901-00

PATIENT
  Age: 50 Year
  Sex: Female
  Weight: 77.18 kg

DRUGS (2)
  1. PAXIL [Concomitant]
     Active Substance: PAROXETINE HYDROCHLORIDE
     Indication: ANXIETY
  2. HUMIRA [Suspect]
     Active Substance: ADALIMUMAB
     Indication: CROHN^S DISEASE
     Dosage: CITRATE FREE
     Route: 058
     Dates: start: 201706, end: 2019

REACTIONS (3)
  - Benign lung neoplasm [Not Recovered/Not Resolved]
  - Musculoskeletal pain [Unknown]
  - Nerve compression [Unknown]

NARRATIVE: CASE EVENT DATE: 201908
